FAERS Safety Report 18507762 (Version 3)
Quarter: 2021Q1

REPORT INFORMATION
  Report Type: Spontaneous
  Country: US (occurrence: US)
  Receive Date: 20201116
  Receipt Date: 20210302
  Transmission Date: 20210419
  Serious: Yes (Death)
  Sender: FDA-Public Use
  Company Number: US-PFIZER INC-2020447714

PATIENT
  Age: 82 Year
  Sex: Male
  Weight: 75.3 kg

DRUGS (1)
  1. XELJANZ XR [Suspect]
     Active Substance: TOFACITINIB CITRATE
     Dosage: 11 MG

REACTIONS (3)
  - Chronic obstructive pulmonary disease [Fatal]
  - Hypoacusis [Unknown]
  - Coronary artery disease [Fatal]
